FAERS Safety Report 21814314 (Version 3)
Quarter: 2023Q1

REPORT INFORMATION
  Report Type: Report from Study
  Country: US (occurrence: US)
  Receive Date: 20230104
  Receipt Date: 20230301
  Transmission Date: 20230418
  Serious: Yes (Hospitalization, Other)
  Sender: FDA-Public Use
  Company Number: US-ABBVIE-4256514

PATIENT
  Age: 67 Year
  Sex: Male
  Weight: 90.718 kg

DRUGS (3)
  1. SKYRIZI [Suspect]
     Active Substance: RISANKIZUMAB-RZAA
     Indication: Psoriasis
     Dosage: FORM STRENGTH: 150 MILLIGRAM
     Route: 058
     Dates: start: 20220216
  2. XARELTO [Concomitant]
     Active Substance: RIVAROXABAN
     Indication: Anticoagulant therapy
  3. EZETIMIBE [Concomitant]
     Active Substance: EZETIMIBE
     Indication: Blood cholesterol abnormal

REACTIONS (9)
  - Knee arthroplasty [Recovering/Resolving]
  - Skin disorder [Recovering/Resolving]
  - Limb injury [Not Recovered/Not Resolved]
  - Post procedural haemorrhage [Recovered/Resolved]
  - Pulmonary thrombosis [Recovering/Resolving]
  - Knee arthroplasty [Unknown]
  - Knee arthroplasty [Unknown]
  - Wound dehiscence [Recovered/Resolved]
  - Wound haemorrhage [Recovered/Resolved]

NARRATIVE: CASE EVENT DATE: 20220321
